FAERS Safety Report 16985019 (Version 1)
Quarter: 2019Q4

REPORT INFORMATION
  Report Type: Spontaneous
  Country: US (occurrence: US)
  Receive Date: 20191101
  Receipt Date: 20191101
  Transmission Date: 20200122
  Serious: No
  Sender: FDA-Public Use
  Company Number: US-AMGEN-USASP2019177143

PATIENT
  Age: 71 Year
  Sex: Female

DRUGS (3)
  1. CALCITROL [CALCITRIOL] [Concomitant]
     Active Substance: CALCITRIOL
  2. VITAMIN D3 [Concomitant]
     Active Substance: CHOLECALCIFEROL
  3. PROLIA [Suspect]
     Active Substance: DENOSUMAB
     Indication: OSTEOPOROSIS POSTMENOPAUSAL
     Dosage: UNK
     Route: 065

REACTIONS (10)
  - Gait inability [Unknown]
  - Back pain [Unknown]
  - Blood parathyroid hormone increased [Unknown]
  - Groin pain [Unknown]
  - Glomerular filtration rate decreased [Unknown]
  - Pain [Unknown]
  - Insomnia [Unknown]
  - Musculoskeletal discomfort [Unknown]
  - Arthritis [Unknown]
  - Bone loss [Unknown]

NARRATIVE: CASE EVENT DATE: 201902
